FAERS Safety Report 4852969-9 (Version None)
Quarter: 2005Q4

REPORT INFORMATION
  Report Type: 
  Country: None (occurrence: None)
  Receive Date: 20051212
  Receipt Date: 20051117
  Transmission Date: 20060501
  Serious: Yes (Other)
  Sender: FDA-Public Use
  Company Number: US200511001399

PATIENT
  Age: 73 Year
  Sex: Male

DRUGS (2)
  1. HUMULIN R [Suspect]
     Indication: DIABETES MELLITUS
     Dosage: SUBCUTANEOUS
     Route: 058
  2. HUMULIN L [Suspect]
     Indication: DIABETES MELLITUS
     Dosage: 45 U, OTHER
     Route: 050

REACTIONS (3)
  - CATARACT [None]
  - VISUAL DISTURBANCE [None]
  - VITREOUS DETACHMENT [None]
